FAERS Safety Report 9516567 (Version 1)
Quarter: 2013Q1

REPORT INFORMATION
  Report Type: Spontaneous
  Country: US (occurrence: None)
  Receive Date: 20130305
  Receipt Date: 20130305
  Transmission Date: 20140127
  Serious: Yes (Hospitalization, Other)
  Sender: FDA-Public Use
  Company Number: 163-21880-12011347

PATIENT
  Age: 83 Year
  Sex: Female

DRUGS (23)
  1. REVLIMID [Suspect]
     Indication: CHRONIC LYMPHOCYTIC LEUKAEMIA
     Dosage: 5 MG, 1 IN 1 D, PO
     Route: 048
     Dates: start: 20111114, end: 20120110
  2. ALBUTEROL SULFATE (SALBUTAMOL SULFATE) (0.083 PERCENT, SOLUTION) [Concomitant]
  3. AZITHROMYCIN (AZITHROMYCIN) (TABLETS) [Concomitant]
  4. DAPSONE (DAPSONE) (TABLETS) [Concomitant]
  5. ALLOPURINOL [Concomitant]
  6. IPRATROPIUM BROMIDE (IPRATROPIUM BROMIDE) (0.02 PERCENT, SOLUTION) [Concomitant]
  7. POTASSIUM CHLORIDE (POTASSIUM CHLORIDE) [Concomitant]
  8. IPRATROPIUM (IPRATROPIUM) [Concomitant]
  9. DETROL LA (TOLTERODINE L-TARTRATE) [Concomitant]
  10. ACYCLOVIR (ACICLOVIR) (ACICLOVIR) [Concomitant]
  11. OMEPRAZOLE (OMEPRAZOLE) [Concomitant]
  12. ADVAIR (SERETIDE MITE) [Concomitant]
  13. WARFARIN (WARFARIN) [Concomitant]
  14. DOXYCYCLINE (DOXYCYCLINE) [Concomitant]
  15. DRONABINOL [Concomitant]
  16. METOPROLOL (METOPROLOL) [Concomitant]
  17. LOPERAMIDE (LOPERAMIDE) [Concomitant]
  18. IGG (IMMUNOGLOBULIN) (10 PERCENT, SOLUTION) [Concomitant]
  19. GLUCOSAMINE (GLUCOSAMINE) [Concomitant]
  20. LORATIDINE [Concomitant]
  21. CITRACAL (CALCIUM CITRATE) [Concomitant]
  22. INFLUENZA (INFLUENZA VACCINE) [Concomitant]
  23. PPV (PNEUMOCOCCAL VACCINE) [Concomitant]

REACTIONS (7)
  - Pneumonia [None]
  - Pseudomonal bacteraemia [None]
  - Neutrophil count decreased [None]
  - Platelet count decreased [None]
  - Chronic lymphocytic leukaemia [None]
  - Disease progression [None]
  - Haemoglobin decreased [None]
